FAERS Safety Report 4844257-1 (Version None)
Quarter: 2005Q4

REPORT INFORMATION
  Report Type: 
  Country: None (occurrence: None)
  Receive Date: 20051202
  Receipt Date: 20050909
  Transmission Date: 20060501
  Serious: Yes (Hospitalization)
  Sender: FDA-Public Use
  Company Number: US-MERCK-0509USA01175

PATIENT
  Age: 65 Year
  Sex: Female

DRUGS (18)
  1. SYNTHROID [Concomitant]
     Route: 065
  2. BENICAR [Concomitant]
     Route: 065
  3. LASIX [Concomitant]
     Route: 065
  4. ASPIRIN [Concomitant]
     Route: 065
  5. ALTACE [Concomitant]
     Route: 065
  6. CRESTOR [Concomitant]
     Route: 065
  7. ADVAIR DISKUS 100/50 [Concomitant]
     Route: 065
  8. COMBIVENT [Concomitant]
     Route: 065
  9. LANOXIN [Concomitant]
     Route: 065
  10. VERAPAMIL HYDROCHLORIDE [Concomitant]
     Route: 065
  11. COREG [Concomitant]
     Route: 065
  12. AVAPRO [Concomitant]
     Route: 065
  13. CALCIUM (UNSPECIFIED) [Concomitant]
     Route: 065
  14. VIOXX [Suspect]
     Indication: PAIN
     Route: 048
     Dates: start: 20010713, end: 20021218
  15. VIOXX [Suspect]
     Route: 048
     Dates: end: 20040901
  16. VIOXX [Suspect]
     Indication: OSTEOARTHRITIS
     Route: 048
     Dates: start: 20010713, end: 20021218
  17. VIOXX [Suspect]
     Route: 048
     Dates: end: 20040901
  18. VITAMIN D (UNSPECIFIED) [Concomitant]
     Route: 065

REACTIONS (12)
  - CORONARY ARTERY DISEASE [None]
  - DIABETES MELLITUS NON-INSULIN-DEPENDENT [None]
  - DIARRHOEA [None]
  - EPISTAXIS [None]
  - GASTROOESOPHAGEAL REFLUX DISEASE [None]
  - HYPOKALAEMIA [None]
  - LIPIDS INCREASED [None]
  - MITRAL VALVE DISEASE [None]
  - MYOCARDIAL INFARCTION [None]
  - RENAL FAILURE [None]
  - RESPIRATORY FAILURE [None]
  - UPPER RESPIRATORY TRACT INFECTION [None]
